FAERS Safety Report 5805728-4 (Version None)
Quarter: 2008Q3

REPORT INFORMATION
  Report Type: 
  Country: None (occurrence: None)
  Receive Date: 20080708
  Receipt Date: 20080708
  Transmission Date: 20090109
  Serious: Yes (Hospitalization)
  Sender: FDA-Public Use
  Company Number: None

PATIENT
  Sex: Female

DRUGS (17)
  1. REVLIMID [Suspect]
     Indication: MYELODYSPLASTIC SYNDROME
     Dosage: 5MG DAILY PO
     Route: 048
     Dates: start: 20080403, end: 20080530
  2. OMEPRAZOLE [Concomitant]
  3. TEMAZEPAM [Concomitant]
  4. FLUOXETINE [Concomitant]
  5. VICODIN [Concomitant]
  6. RANITIDINE HCL [Concomitant]
  7. FUROSEMIDE [Concomitant]
  8. K-TAB [Concomitant]
  9. LEVOTHROID [Concomitant]
  10. MULTI-VITAMIN [Concomitant]
  11. FOLIC ACID [Concomitant]
  12. METHOCARBAMOL [Concomitant]
  13. VITAMIN B6 [Concomitant]
  14. IMIPRAMINE [Concomitant]
  15. VITAMIN E [Concomitant]
  16. MAALOX [Concomitant]
  17. METOPROLOL TARTRATE [Concomitant]

REACTIONS (13)
  - ASTHENIA [None]
  - ATRIAL FIBRILLATION [None]
  - BRONCHITIS [None]
  - COUGH [None]
  - GASTRITIS [None]
  - NAUSEA [None]
  - NEUTROPENIA [None]
  - OESOPHAGITIS [None]
  - OROPHARYNGEAL PAIN [None]
  - PYREXIA [None]
  - SPUTUM DISCOLOURED [None]
  - STOMACH DISCOMFORT [None]
  - URINARY TRACT INFECTION [None]
